FAERS Safety Report 18997461 (Version 1)
Quarter: 2021Q1

REPORT INFORMATION
  Report Type: Spontaneous
  Country: GR (occurrence: GR)
  Receive Date: 20210311
  Receipt Date: 20210311
  Transmission Date: 20210420
  Serious: Yes (Hospitalization)
  Sender: FDA-Public Use
  Company Number: GR-ASTRAZENECA-2021A102009

PATIENT
  Sex: Female
  Weight: 60 kg

DRUGS (9)
  1. CANCIDAS [Suspect]
     Active Substance: CASPOFUNGIN ACETATE
     Route: 065
  2. NORVASC [Suspect]
     Active Substance: AMLODIPINE BESYLATE
     Route: 065
  3. LOSEC [Suspect]
     Active Substance: OMEPRAZOLE
     Route: 048
  4. CUBICIN [Suspect]
     Active Substance: DAPTOMYCIN
     Route: 065
  5. ALDACTONE [Suspect]
     Active Substance: SPIRONOLACTONE
     Route: 065
  6. LASIX [Suspect]
     Active Substance: FUROSEMIDE
     Route: 065
  7. VALTREX [Suspect]
     Active Substance: VALACYCLOVIR HYDROCHLORIDE
     Route: 065
  8. MABTHERA [Suspect]
     Active Substance: RITUXIMAB
     Route: 065
  9. VEPESID [Suspect]
     Active Substance: ETOPOSIDE
     Route: 065

REACTIONS (2)
  - Disease progression [Unknown]
  - Diffuse large B-cell lymphoma refractory [Unknown]
